FAERS Safety Report 4879857-6 (Version None)
Quarter: 2006Q1

REPORT INFORMATION
  Report Type: 
  Country: None (occurrence: None)
  Receive Date: 20060113
  Receipt Date: 20050809
  Transmission Date: 20060701
  Serious: Yes (Hospitalization)
  Sender: FDA-Public Use
  Company Number: CA-BOEHRINGER INGELHEIM PHARMACEUTICALS, INC.-2005-CN-00843CN

PATIENT
  Sex: Female

DRUGS (8)
  1. SPIRIVA [Suspect]
  2. VENTOLIN [Concomitant]
  3. SINGULAIR [Concomitant]
  4. ATIVAN [Concomitant]
  5. CELEBREX [Concomitant]
  6. COUMADIN [Concomitant]
  7. BROMAZEPAM [Concomitant]
  8. TREMIPROMENE [Concomitant]

REACTIONS (1)
  - INTESTINAL OBSTRUCTION [None]
